FAERS Safety Report 10530434 (Version 1)
Quarter: 2014Q4

REPORT INFORMATION
  Report Type: Spontaneous
  Country: US (occurrence: None)
  Receive Date: 20141020
  Receipt Date: 20141020
  Transmission Date: 20150528
  Serious: Yes (Disabling, Other)
  Sender: FDA-Public Use
  Company Number: None

PATIENT
  Age: 80 Year
  Sex: Male
  Weight: 113.4 kg

DRUGS (1)
  1. LEVAQUIN [Suspect]
     Active Substance: LEVOFLOXACIN
     Indication: PNEUMONIA
     Dosage: 1 A DAY FOR 10 DAYS
     Dates: start: 20140802, end: 20140809

REACTIONS (5)
  - Tendon rupture [None]
  - Activities of daily living impaired [None]
  - Tendonitis [None]
  - Impaired self-care [None]
  - Abasia [None]

NARRATIVE: CASE EVENT DATE: 20140925
